FAERS Safety Report 7352828-6 (Version None)
Quarter: 2011Q1

REPORT INFORMATION
  Report Type: 
  Country: None (occurrence: None)
  Receive Date: 20110302
  Receipt Date: 20100913
  Transmission Date: 20110831
  Serious: Yes (Hospitalization)
  Sender: FDA-Public Use
  Company Number: 311341

PATIENT
  Age: 77 Year
  Sex: Male
  Weight: 70.3 kg

DRUGS (13)
  1. LANTUS [Suspect]
     Indication: TYPE 2 DIABETES MELLITUS
     Dosage: 35 U, QD, SUBCUTANEOUS, 45 U, QD, SUBCUTANEOUS, 40 U, QD, SUBCUTANEOUS
     Route: 058
     Dates: start: 20030101, end: 20100601
  2. LANTUS [Suspect]
     Indication: TYPE 2 DIABETES MELLITUS
     Dosage: 35 U, QD, SUBCUTANEOUS, 45 U, QD, SUBCUTANEOUS, 40 U, QD, SUBCUTANEOUS
     Route: 058
     Dates: start: 20100701
  3. LANTUS [Suspect]
     Indication: TYPE 2 DIABETES MELLITUS
     Dosage: 35 U, QD, SUBCUTANEOUS, 45 U, QD, SUBCUTANEOUS, 40 U, QD, SUBCUTANEOUS
     Route: 058
     Dates: start: 20100626, end: 20100701
  4. DILTIAZEM [Concomitant]
  5. ZOCOR [Concomitant]
  6. VITAMIN TAB [Concomitant]
  7. IRON (IRON) [Concomitant]
  8. NOVOLIN R [Suspect]
     Indication: TYPE 2 DIABETES MELLITUS
     Dosage: SLIDING SCALE, SUBCUTANEOUS
     Route: 058
     Dates: start: 20030101
  9. PREDNISONE TAB [Suspect]
     Indication: TEMPORAL ARTERITIS
     Dosage: 20 MG, TID, ORAL, 30 MG, QD, ORAL
     Route: 048
     Dates: start: 20090101, end: 20100601
  10. PREDNISONE TAB [Suspect]
     Indication: MYALGIA
     Dosage: 20 MG, TID, ORAL, 30 MG, QD, ORAL
     Route: 048
     Dates: start: 20090101, end: 20100601
  11. PREDNISONE TAB [Suspect]
     Indication: TEMPORAL ARTERITIS
     Dosage: 20 MG, TID, ORAL, 30 MG, QD, ORAL
     Route: 048
     Dates: start: 20100701
  12. PREDNISONE TAB [Suspect]
     Indication: MYALGIA
     Dosage: 20 MG, TID, ORAL, 30 MG, QD, ORAL
     Route: 048
     Dates: start: 20100701
  13. LASIX [Concomitant]

REACTIONS (2)
  - DIABETIC HYPERGLYCAEMIC COMA [None]
  - HYPOGLYCAEMIA [None]
